FAERS Safety Report 24293491 (Version 1)
Quarter: 2024Q3

REPORT INFORMATION
  Report Type: Spontaneous
  Country: US (occurrence: None)
  Receive Date: 20240906
  Receipt Date: 20240906
  Transmission Date: 20241017
  Serious: No
  Sender: DOMPE FARMACEUTICI
  Company Number: US-FARMAPROD-202308-202401-0229

PATIENT
  Sex: Female

DRUGS (22)
  1. OXERVATE [Suspect]
     Active Substance: CENEGERMIN-BKBJ
     Indication: Neurotrophic keratopathy
     Route: 047
     Dates: start: 20240110
  2. EYE HEALTH PLUS LUTEIN [Concomitant]
  3. TACROLIMUS [Concomitant]
     Active Substance: TACROLIMUS
  4. METHOTREXATE [Concomitant]
     Active Substance: METHOTREXATE
  5. AROMASIN [Concomitant]
     Active Substance: EXEMESTANE
  6. PROBIOTIC 10B CELL [Concomitant]
  7. CLOBETASOL PROPIONATE [Concomitant]
     Active Substance: CLOBETASOL PROPIONATE
  8. VITAMIN E [Concomitant]
     Active Substance: .ALPHA.-TOCOPHEROL
  9. MITOCHONDRIAL RENEWAL KIT [Concomitant]
  10. MAGNESIUM [Concomitant]
     Active Substance: MAGNESIUM
  11. OMEGA-3-FISH OIL-VITAMIN D3 [Concomitant]
  12. HERBALS\SPIRULINA [Concomitant]
     Active Substance: HERBALS\SPIRULINA
  13. VITAMIN C [Concomitant]
     Active Substance: ASCORBIC ACID
  14. CALCIUM [Concomitant]
     Active Substance: CALCIUM
     Dosage: 500-100-40
  15. MIEBO [Concomitant]
     Active Substance: PERFLUOROHEXYLOCTANE
  16. RESTASIS [Concomitant]
     Active Substance: CYCLOSPORINE
  17. TRAZODONE HYDROCHLORIDE [Concomitant]
     Active Substance: TRAZODONE HYDROCHLORIDE
  18. VALTREX [Concomitant]
     Active Substance: VALACYCLOVIR HYDROCHLORIDE
  19. FLONASE ALLERGY RELIEF [Concomitant]
     Active Substance: FLUTICASONE PROPIONATE
  20. LEXAPRO [Concomitant]
     Active Substance: ESCITALOPRAM OXALATE
  21. OTEZLA [Concomitant]
     Active Substance: APREMILAST
  22. SINGULAIR [Concomitant]
     Active Substance: MONTELUKAST SODIUM

REACTIONS (1)
  - Eye pain [Unknown]
